FAERS Safety Report 8499932-7 (Version None)
Quarter: 2012Q3

REPORT INFORMATION
  Report Type: 
  Country: None (occurrence: None)
  Receive Date: 20120710
  Receipt Date: 20120702
  Transmission Date: 20120928
  Serious: Yes (Hospitalization, Other)
  Sender: FDA-Public Use
  Company Number: US-BAYER-2011-074964

PATIENT
  Age: 42 Year
  Sex: Female
  Weight: 122 kg

DRUGS (7)
  1. DIOVAN [Concomitant]
  2. HYDROCHLOROTHIAZIDE [Concomitant]
  3. GLIPIZIDE [Concomitant]
  4. YAZ [Suspect]
     Indication: PREMENSTRUAL SYNDROME
     Dosage: UNK
     Dates: start: 20030101, end: 20031201
  5. PLAVIX [Concomitant]
  6. YASMIN [Suspect]
     Indication: PREMENSTRUAL SYNDROME
     Dosage: UNK
     Dates: start: 20090501, end: 20090901
  7. HYDRALAZINE HYDROCHLORIDE [Concomitant]

REACTIONS (3)
  - DEEP VEIN THROMBOSIS [None]
  - THROMBOSIS [None]
  - INJURY [None]
